FAERS Safety Report 14077843 (Version 1)
Quarter: 2017Q4

REPORT INFORMATION
  Report Type: Spontaneous
  Country: HU (occurrence: HU)
  Receive Date: 20171012
  Receipt Date: 20171012
  Transmission Date: 20180321
  Serious: Yes (Other)
  Sender: FDA-Public Use
  Company Number: HU-ACCORD-059750

PATIENT
  Age: 37 Year
  Sex: Male

DRUGS (11)
  1. OXALIPLATIN ACCORD [Suspect]
     Active Substance: OXALIPLATIN
     Indication: RECTAL CANCER
     Route: 042
     Dates: start: 20170920
  2. VITAMIN D3 3000 NE BIOEXTRA [Concomitant]
     Indication: PROPHYLAXIS
     Route: 048
  3. DUROGESIC [Concomitant]
     Active Substance: FENTANYL
     Indication: ANALGESIC THERAPY
     Dosage: DOSE: 20 MCG/H
     Route: 062
  4. LEUCOVORIN-TEVA [Concomitant]
     Active Substance: LEUCOVORIN
     Indication: RECTAL CANCER
     Route: 040
     Dates: start: 20170707
  5. FLUOROURACIL ACCORD [Suspect]
     Active Substance: FLUOROURACIL
     Indication: RECTAL CANCER
     Route: 040
     Dates: start: 20170920
  6. ONDANSETRON KABI [Concomitant]
     Active Substance: ONDANSETRON
     Indication: PREMEDICATION
     Route: 042
  7. BENFOGAMMA [Concomitant]
     Indication: PROPHYLAXIS
     Route: 048
  8. SUPRASTIN [Concomitant]
     Active Substance: CHLOROPYRAMINE HYDROCHLORIDE
     Indication: PREMEDICATION
     Route: 042
  9. SOLU-MEDROL [Concomitant]
     Active Substance: METHYLPREDNISOLONE SODIUM SUCCINATE
     Indication: PREMEDICATION
     Route: 042
  10. TENUTAN [Concomitant]
     Indication: PROPHYLAXIS
     Route: 048
  11. VECTIBIX [Concomitant]
     Active Substance: PANITUMUMAB
     Indication: RECTAL CANCER
     Route: 042
     Dates: start: 20170707

REACTIONS (2)
  - Hypoaesthesia [Recovering/Resolving]
  - Feeling cold [Recovered/Resolved]

NARRATIVE: CASE EVENT DATE: 20170920
